FAERS Safety Report 6538890-9 (Version None)
Quarter: 2010Q1

REPORT INFORMATION
  Report Type: 
  Country: None (occurrence: None)
  Receive Date: 20100115
  Receipt Date: 20100106
  Transmission Date: 20100710
  Serious: Yes (Hospitalization)
  Sender: FDA-Public Use
  Company Number: GB-ELI_LILLY_AND_COMPANY-GB201001001236

PATIENT
  Sex: Male

DRUGS (5)
  1. GEMCITABINE HCL [Suspect]
     Indication: TRANSITIONAL CELL CARCINOMA
     Dosage: 1000 MG/M2, DAYS 1+8
     Dates: start: 20090731
  2. GEMCITABINE HCL [Suspect]
     Dosage: 750 MG/M2, DAYS 1+8
     Dates: start: 20090826
  3. CISPLATIN [Suspect]
     Indication: TRANSITIONAL CELL CARCINOMA
     Dosage: 70 MG/M2, DAY 1
     Dates: start: 20090731
  4. SUNITINIB MALATE [Suspect]
     Indication: TRANSITIONAL CELL CARCINOMA
     Dosage: 25 MG, UNK
     Route: 048
     Dates: start: 20090924, end: 20091008
  5. AMLODIPINE [Concomitant]
     Dosage: 5 MG, UNK
     Dates: start: 20091009

REACTIONS (2)
  - PYREXIA [None]
  - URINARY TRACT INFECTION [None]
